FAERS Safety Report 23737768 (Version 2)
Quarter: 2024Q2

REPORT INFORMATION
  Report Type: Spontaneous
  Country: IN (occurrence: IN)
  Receive Date: 20240412
  Receipt Date: 20240510
  Transmission Date: 20240716
  Serious: Yes (Other)
  Sender: FDA-Public Use
  Company Number: IN-PFIZER INC-2018128781

PATIENT
  Age: 60 Year
  Sex: Female
  Weight: 80 kg

DRUGS (8)
  1. AROMASIN [Suspect]
     Active Substance: EXEMESTANE
     Indication: Breast cancer metastatic
     Dosage: 25 MG, 1X/DAY, (10D*3 MONTH 1-X, AS REPORTED)
     Route: 048
     Dates: start: 20170824
  2. AROMASIN [Suspect]
     Active Substance: EXEMESTANE
     Dosage: 50 MG, DAILY (2, 25 MG TABLETS A DAY)
  3. AROMASIN [Suspect]
     Active Substance: EXEMESTANE
     Dosage: 25 MG, 1X/DAY
     Route: 048
  4. SPIREX PLUS [Concomitant]
     Dosage: UNK (1BDX3 MONT 1-1)
  5. OSTEOFOS [Concomitant]
     Dosage: 70 MG, WEEKLY
  6. CCM [Concomitant]
     Dosage: UNK
  7. CALCIUM CARBONATE\CHOLECALCIFEROL [Concomitant]
     Active Substance: CALCIUM CARBONATE\CHOLECALCIFEROL
     Dosage: UNK
  8. ERGOCALCIFEROL [Concomitant]
     Active Substance: ERGOCALCIFEROL
     Dosage: UNK

REACTIONS (18)
  - Type 2 diabetes mellitus [Unknown]
  - Osteoporosis [Unknown]
  - Peripheral swelling [Unknown]
  - Pain in extremity [Unknown]
  - Breast pain [Unknown]
  - Osteopenia [Unknown]
  - Dysuria [Unknown]
  - Urine abnormality [Unknown]
  - White blood cells urine positive [Unknown]
  - Glycosylated haemoglobin increased [Unknown]
  - Vitamin D decreased [Unknown]
  - Neck pain [Unknown]
  - Cough [Unknown]
  - Rhinorrhoea [Unknown]
  - Pyrexia [Unknown]
  - Vascular calcification [Unknown]
  - Neoplasm progression [Unknown]
  - Off label use [Unknown]

NARRATIVE: CASE EVENT DATE: 20190301
